FAERS Safety Report 15516078 (Version 9)
Quarter: 2019Q3

REPORT INFORMATION
  Report Type: Spontaneous
  Country: US (occurrence: US)
  Receive Date: 20181017
  Receipt Date: 20190820
  Transmission Date: 20191004
  Serious: Yes (Other)
  Sender: FDA-Public Use
  Company Number: US-PFIZER INC-2018419211

PATIENT
  Age: 53 Year
  Sex: Female
  Weight: 58.96 kg

DRUGS (10)
  1. PREMARIN [Concomitant]
     Active Substance: ESTROGENS, CONJUGATED
     Indication: HORMONE LEVEL ABNORMAL
     Dosage: 0.625 MG, 1X/DAY
     Route: 048
     Dates: start: 1977
  2. CLOPIDOGREL [Concomitant]
     Active Substance: CLOPIDOGREL BISULFATE
     Dosage: 75 MG, DAILY
  3. LYRICA [Suspect]
     Active Substance: PREGABALIN
     Indication: PAIN
     Dosage: 200 MG, UNK (TWO OR 3 TIMES A DAY)
     Route: 048
  4. CARTIA XT [Concomitant]
     Active Substance: DILTIAZEM HYDROCHLORIDE
     Dosage: UNK (120/24 HR CAP WAT)
  5. LYRICA [Suspect]
     Active Substance: PREGABALIN
     Dosage: 200 MG, 3X/DAY
     Route: 048
  6. PREMARIN [Concomitant]
     Active Substance: ESTROGENS, CONJUGATED
     Indication: AFFECTIVE DISORDER
     Dosage: UNK, DAILY
     Dates: start: 2001
  7. METOPROLOL. [Concomitant]
     Active Substance: METOPROLOL
     Dosage: 25 MG, UNK (CUT IN HALF TAKEN HALF AM AND PM)
  8. LYRICA [Suspect]
     Active Substance: PREGABALIN
     Indication: FIBROMYALGIA
     Dosage: 200 MG, 3X/DAY
     Route: 048
  9. FUROSEMIDE. [Concomitant]
     Active Substance: FUROSEMIDE
     Dosage: 20 MG, DAILY
  10. LEVOTHYROXIN [Concomitant]
     Active Substance: LEVOTHYROXINE
     Dosage: 100 UG, DAILY (100MCG TAB SAN DAILY)

REACTIONS (14)
  - Off label use [Not Recovered/Not Resolved]
  - Speech disorder [Unknown]
  - Product use issue [Not Recovered/Not Resolved]
  - Anxiety [Unknown]
  - Expired product administered [Unknown]
  - Amnesia [Unknown]
  - Feeling abnormal [Unknown]
  - Hot flush [Recovered/Resolved]
  - Gait disturbance [Unknown]
  - Cerebrovascular accident [Unknown]
  - Back pain [Recovered/Resolved]
  - Dyspnoea [Recovered/Resolved]
  - Fatigue [Unknown]
  - Musculoskeletal pain [Recovered/Resolved]

NARRATIVE: CASE EVENT DATE: 2002
